FAERS Safety Report 9821063 (Version 1)
Quarter: 2013Q4

REPORT INFORMATION
  Report Type: Spontaneous
  Country: US (occurrence: None)
  Receive Date: 20131028
  Receipt Date: 20131028
  Transmission Date: 20140711
  Serious: Yes (Hospitalization)
  Sender: FDA-Public Use
  Company Number: 2013US001794

PATIENT
  Age: 66 Year
  Sex: Male

DRUGS (14)
  1. ICLUSIG [Suspect]
     Indication: CHRONIC MYELOID LEUKAEMIA
     Route: 048
     Dates: start: 20130509, end: 20130601
  2. AMLODIPINE (AMLODIPINE) [Concomitant]
  3. TAMSULOSIN (TAMSULOSIN) [Concomitant]
  4. ALLOPURINOL (ALLOPURINOL) [Concomitant]
  5. OXYCODONE (OXYCODONE) [Concomitant]
  6. ATENOLOL (ATENOLOL) [Concomitant]
  7. COMPAZINE (PROCHLORPERAZINE EDISYLATE) [Concomitant]
  8. KCI (KCI) [Concomitant]
  9. GLUCOSAMINE (GLUCOSAMINE) [Concomitant]
  10. ALTACE (RAMIPRIL) [Concomitant]
  11. FLUTICASONE PROPIONATE (FLUTICASONE PROPIONATE) [Concomitant]
  12. GROUND FLAX (HERBAL EXTRACT NOS) [Concomitant]
  13. PERCOCET (OXYCODONE HYDROCHLORIDE, PARACETAMOL) [Concomitant]
  14. MIRTAZAPINE (MIRTAZAPINE) [Concomitant]

REACTIONS (1)
  - Pancreatitis [None]
